FAERS Safety Report 6896528-5 (Version None)
Quarter: 2010Q3

REPORT INFORMATION
  Report Type: 
  Country: None (occurrence: None)
  Receive Date: 20100720
  Receipt Date: 20100709
  Transmission Date: 20110219
  Serious: Yes (Hospitalization, Other)
  Sender: FDA-Public Use
  Company Number: AEUSA201000259

PATIENT
  Age: 16 Year
  Sex: Male
  Weight: 60 kg

DRUGS (1)
  1. HYPERAB S/D [Suspect]
     Indication: ANIMAL BITE
     Dosage: 3 ML; 1X; IM
     Dates: start: 20100708, end: 20100708

REACTIONS (5)
  - BRADYCARDIA [None]
  - DIZZINESS [None]
  - GRAND MAL CONVULSION [None]
  - HYPERTENSION [None]
  - PARAESTHESIA [None]
